FAERS Safety Report 5924214-4 (Version None)
Quarter: 2008Q3

REPORT INFORMATION
  Report Type: 
  Country: None (occurrence: None)
  Receive Date: 20080909
  Receipt Date: 20080213
  Transmission Date: 20090109
  Serious: Yes (Hospitalization)
  Sender: FDA-Public Use
  Company Number: 163-20785-08011356

PATIENT
  Age: 69 Year
  Sex: Male
  Weight: 93.1 kg

DRUGS (32)
  1. THALOMID [Suspect]
     Indication: MULTIPLE MYELOMA
     Dosage: 200 MG, QD, ORAL
     Route: 048
     Dates: start: 20060513, end: 20080211
  2. VELCADE [Suspect]
     Indication: MULTIPLE MYELOMA
     Dosage: 1 MG/M2, INTRAVENOUS
     Route: 042
     Dates: start: 20060510, end: 20080215
  3. DEXAMETHASONE TAB [Suspect]
     Indication: MULTIPLE MYELOMA
     Dosage: 40 MG, ORAL
     Route: 048
     Dates: start: 20060513, end: 20080211
  4. CISPLATIN [Suspect]
     Indication: MULTIPLE MYELOMA
     Dosage: 10 MG/M2
     Dates: start: 20060513, end: 20080211
  5. ADRIAMYCIN PFS [Suspect]
     Indication: MULTIPLE MYELOMA
     Dosage: 10 MG/M2
     Dates: start: 20060513, end: 20080211
  6. CYCLOPHOSPHAMIDE [Suspect]
     Indication: MULTIPLE MYELOMA
     Dosage: 400 MG/M2
     Dates: start: 20060513, end: 20080211
  7. ETOPOSIDE [Suspect]
     Indication: MULTIPLE MYELOMA
     Dosage: 40 MG/M2
     Dates: start: 20060513, end: 20080211
  8. MELPHALAN (MELPHALAN) [Suspect]
     Indication: MULTIPLE MYELOMA
     Dosage: 200 MG/M2
     Dates: start: 20060822, end: 20061028
  9. FLUNISOLIDE (FLUNISOLIDE) (SOLUTION) [Concomitant]
  10. ALLEGRA [Concomitant]
  11. ACYCLOVIR (ACICLOVIR) (TABLETS) [Concomitant]
  12. DOCUSATE SODIUM (DOCUSATE SODIUM) (100 MILLIGRAM, TABLETS) [Concomitant]
  13. OXYCODONE HCL (OXYCODONE HYDROCHLORIDE) (5 MILLIGRAM, TABLETS) [Concomitant]
  14. LEXAPRO [Concomitant]
  15. MENS ONE DAILY (ONE A DAY MENS) (TABLETS) [Concomitant]
  16. RANITIDINE (RANITIDINE) (150 MILLIGRAM, CAPSULES) [Concomitant]
  17. FOLIC ACID (FOLIC ACID) (TABLETS) [Concomitant]
  18. OXYCONTIN (OXYCODONE HYDROCHLORIDE) (TABLETS) [Concomitant]
  19. TESTOSTERONE ENANTHATE (TESTOSTERONE ENANTATE) [Concomitant]
  20. LEVAQUIN [Concomitant]
  21. DIPHENHYDRAMINE (DIPHENHYDRAMINE) (CAPSULES) [Concomitant]
  22. ACTIQ [Concomitant]
  23. FLUCONAZOLE (FLUCONAZOLE) (TABLETS) [Concomitant]
  24. NEUPOGEN (FILGRASTIM) (SOLUTION) [Concomitant]
  25. LOMOTIL (LOMOTIL) (TABLETS) [Concomitant]
  26. ALDACTONE [Concomitant]
  27. POTASSIUM CHLORIDE [Concomitant]
  28. FAMOTIDINE (FAMOTIDINE) (10 MILLIGRAM, SOLUTION) [Concomitant]
  29. VANCOCIN (VANCOMYCIN HYDROCHLORIDE) (250 MILLIGRAM, CAPSULES) [Concomitant]
  30. PROTONIX (PANTOPRAZOLE) (TABLETS) [Concomitant]
  31. TAMIFLU [Concomitant]
  32. METOPROLOL TARTRATE (METOPROLOL TARTRATE) (25 MILLIGRAM, TABLETS) [Concomitant]

REACTIONS (1)
  - COLITIS [None]
